FAERS Safety Report 5483605-9 (Version None)
Quarter: 2007Q4

REPORT INFORMATION
  Report Type: 
  Country: None (occurrence: None)
  Receive Date: 20071009
  Receipt Date: 20070920
  Transmission Date: 20080405
  Serious: Yes (Hospitalization)
  Sender: FDA-Public Use
  Company Number: 8026963

PATIENT
  Age: 56 Year
  Sex: Female

DRUGS (20)
  1. LORTAB [Suspect]
  2. BENADRYL [Suspect]
  3. VARENICLINE [Suspect]
  4. RIVAROXABAN [Suspect]
     Indication: ACUTE CORONARY SYNDROME
     Dates: start: 20070729
  5. RIVAROXABAN [Suspect]
     Indication: ACUTE CORONARY SYNDROME
     Dates: start: 20070802
  6. ASPIRIN [Suspect]
     Indication: ACUTE CORONARY SYNDROME
     Dates: start: 20070612
  7. PLAVIX [Suspect]
     Indication: ACUTE CORONARY SYNDROME
     Dates: start: 20070612
  8. ASPIRIN [Concomitant]
  9. FOLTX [Concomitant]
  10. POTASSIUM CHLORIDE [Concomitant]
  11. CALCIUM PLUS VITAMIN D [Concomitant]
  12. NITROGLYCERIN [Concomitant]
  13. ISIOSORBIDE MONONITRATE CR [Concomitant]
  14. PAROXETINE [Concomitant]
  15. PLAVIX [Concomitant]
  16. NEXIUM [Concomitant]
  17. FLEXERIL [Concomitant]
  18. LISINOPRIL [Concomitant]
  19. TOPROL-XL [Concomitant]
  20. PRAVASTATIN [Concomitant]

REACTIONS (2)
  - DRUG INTERACTION [None]
  - MENTAL STATUS CHANGES [None]
